FAERS Safety Report 4449813-0 (Version None)
Quarter: 2004Q3

REPORT INFORMATION
  Report Type: 
  Country: None (occurrence: None)
  Receive Date: 20040802
  Receipt Date: 20030715
  Transmission Date: 20050211
  Serious: Yes (Life-Threatening, Hospitalization)
  Sender: FDA-Public Use
  Company Number: US-SHR-03-009788

PATIENT
  Age: 77 Year
  Sex: Female

DRUGS (6)
  1. MAGNEVIST [Suspect]
     Indication: NUCLEAR MAGNETIC RESONANCE IMAGING BRAIN
     Dosage: 5 ML, 1 DOSE, INTRAVENOUS
     Route: 042
     Dates: start: 20030619, end: 20030619
  2. GLUCOPHAGE [Concomitant]
  3. LIPITOR [Concomitant]
  4. ISOSORBIDE [Concomitant]
  5. TENORETIC (CHLORTALIDONE) [Concomitant]
  6. PRILOSEC [Concomitant]

REACTIONS (4)
  - DYSPNOEA [None]
  - HYPERSENSITIVITY [None]
  - OROPHARYNGEAL SWELLING [None]
  - SWELLING FACE [None]
